FAERS Safety Report 7527542-4 (Version None)
Quarter: 2011Q2

REPORT INFORMATION
  Report Type: 
  Country: None (occurrence: None)
  Receive Date: 20110607
  Receipt Date: 20110601
  Transmission Date: 20111010
  Serious: No
  Sender: FDA-Public Use
  Company Number: US-PFIZER INC-2011120518

PATIENT
  Sex: Female

DRUGS (12)
  1. MIRAPEX [Concomitant]
     Indication: RESTLESS LEGS SYNDROME
     Dosage: 0.25 MG, DAILY
     Route: 048
  2. TOVIAZ [Suspect]
     Dosage: 8 MG, DAILY
     Route: 048
     Dates: start: 20110401
  3. OSCAL [Concomitant]
     Indication: MINERAL SUPPLEMENTATION
     Dosage: UNK
     Route: 048
  4. OXYCODONE [Concomitant]
     Dosage: 7.5/500 MG ONE OR TWO TABLETS DAILY
     Route: 048
  5. CLONAZEPAM [Concomitant]
     Dosage: 0.5 MG, 3X/DAY
     Route: 048
  6. SIMVASTATIN [Concomitant]
     Indication: BLOOD CHOLESTEROL INCREASED
     Dosage: 40 MG, DAILY
     Route: 048
  7. ADDERALL 10 [Concomitant]
     Dosage: 20 MG, DAILY
     Route: 048
  8. CENTRUM SILVER [Concomitant]
     Indication: MEDICAL DIET
     Dosage: DAILY
     Route: 048
  9. TOVIAZ [Suspect]
     Indication: HYPERTONIC BLADDER
     Dosage: 4 MG, DAILY
     Route: 048
     Dates: start: 20110101
  10. GLUCOSAMINE HYDROCHLORIDE/CHONDROITIN SULFATE [Concomitant]
     Indication: NERVOUS SYSTEM DISORDER
     Dosage: 2 TABLETS DAILY
     Route: 048
  11. BACLOFEN [Concomitant]
     Dosage: 20 MG, 3X/DAY
     Route: 048
  12. ATENOLOL [Concomitant]
     Dosage: 25 MG, DAILY AT NIGHT
     Route: 048

REACTIONS (2)
  - MIDDLE INSOMNIA [None]
  - DRUG INEFFECTIVE [None]
